FAERS Safety Report 16068342 (Version 1)
Quarter: 2019Q1

REPORT INFORMATION
  Report Type: Report from Study
  Country: None (occurrence: US)
  Receive Date: 20190313
  Receipt Date: 20190313
  Transmission Date: 20190418
  Serious: Yes (Other)
  Sender: FDA-Public Use
  Company Number: US-ABBVIE-19K-163-2699079-00

PATIENT
  Sex: Male

DRUGS (1)
  1. HUMIRA [Suspect]
     Active Substance: ADALIMUMAB
     Indication: CROHN^S DISEASE
     Route: 058

REACTIONS (9)
  - Pneumonia [Unknown]
  - Colostomy [Recovered/Resolved with Sequelae]
  - Ankylosing spondylitis [Recovered/Resolved with Sequelae]
  - Small intestinal perforation [Unknown]
  - Surgery [Recovered/Resolved with Sequelae]
  - Pain [Unknown]
  - Joint range of motion decreased [Unknown]
  - Small intestinal obstruction [Unknown]
  - Muscle spasms [Recovered/Resolved with Sequelae]
